FAERS Safety Report 7662156-7 (Version None)
Quarter: 2011Q3

REPORT INFORMATION
  Report Type: 
  Country: None (occurrence: None)
  Receive Date: 20110805
  Receipt Date: 20101202
  Transmission Date: 20111222
  Serious: No
  Sender: FDA-Public Use
  Company Number: US-ABBOTT-10P-163-0689603-00

PATIENT
  Sex: Female
  Weight: 60.382 kg

DRUGS (4)
  1. AMLODIPINE [Concomitant]
     Indication: HYPERTENSION
  2. NIASPAN [Suspect]
  3. LISINOPRIL [Concomitant]
     Indication: HYPERTENSION
  4. NIASPAN [Suspect]
     Indication: ARTERIAL OCCLUSIVE DISEASE
     Route: 048
     Dates: start: 20101125, end: 20101126

REACTIONS (4)
  - HEART RATE INCREASED [None]
  - BURNING SENSATION [None]
  - PARAESTHESIA [None]
  - PRURITUS [None]
